FAERS Safety Report 6463769-0 (Version None)
Quarter: 2009Q4

REPORT INFORMATION
  Report Type: 
  Country: None (occurrence: None)
  Receive Date: 20091201
  Receipt Date: 20091120
  Transmission Date: 20100525
  Serious: No
  Sender: FDA-Public Use
  Company Number: US-JNJFOC-20091106836

PATIENT
  Sex: Female
  Weight: 63.5 kg

DRUGS (4)
  1. DURAGESIC-100 [Suspect]
     Route: 062
     Dates: start: 20091101
  2. DURAGESIC-100 [Suspect]
     Indication: RHEUMATOID ARTHRITIS
     Route: 062
     Dates: start: 20091101
  3. DURAGESIC-100 [Suspect]
     Route: 062
     Dates: start: 20091116, end: 20091116
  4. METHADONE HCL [Suspect]
     Indication: PAIN
     Route: 048

REACTIONS (7)
  - CHEST DISCOMFORT [None]
  - DYSGEUSIA [None]
  - INADEQUATE ANALGESIA [None]
  - NAUSEA [None]
  - SKIN DISCOLOURATION [None]
  - SKIN ODOUR ABNORMAL [None]
  - TREATMENT NONCOMPLIANCE [None]
